FAERS Safety Report 13416118 (Version 1)
Quarter: 2017Q2

REPORT INFORMATION
  Report Type: Spontaneous
  Country: FR (occurrence: FR)
  Receive Date: 20170406
  Receipt Date: 20170406
  Transmission Date: 20170830
  Serious: Yes (Hospitalization)
  Sender: FDA-Public Use
  Company Number: FR-INDIVIOR LIMITED-INDV-100131-2017

PATIENT
  Sex: Male

DRUGS (1)
  1. SUBUTEX [Suspect]
     Active Substance: BUPRENORPHINE HYDROCHLORIDE
     Indication: PRODUCT USED FOR UNKNOWN INDICATION
     Dosage: 16 TABLETS (8 CAPSULES OF 8 MG (8 DF))
     Route: 048

REACTIONS (9)
  - Balance disorder [Recovered/Resolved]
  - Suicide attempt [Unknown]
  - Miosis [Recovered/Resolved]
  - Somnolence [Recovered/Resolved]
  - Drug diversion [Unknown]
  - Intentional product use issue [Unknown]
  - Toxicity to various agents [Recovered/Resolved]
  - Vertigo [Recovered/Resolved]
  - Intentional overdose [Unknown]
